FAERS Safety Report 4307815-9 (Version None)
Quarter: 2004Q1

REPORT INFORMATION
  Report Type: 
  Country: None (occurrence: None)
  Receive Date: 20040226
  Receipt Date: 20030623
  Transmission Date: 20041129
  Serious: Yes (Hospitalization)
  Sender: FDA-Public Use
  Company Number: 2003165262US

PATIENT
  Sex: Female

DRUGS (2)
  1. CARDIZEM [Suspect]
     Dosage: ORAL
     Route: 048
  2. CELEBREX [Suspect]
     Dates: end: 19991101

REACTIONS (1)
  - LEUKOCYTOCLASTIC VASCULITIS [None]
